FAERS Safety Report 7720505-5 (Version None)
Quarter: 2011Q3

REPORT INFORMATION
  Report Type: 
  Country: None (occurrence: None)
  Receive Date: 20110831
  Receipt Date: 20110819
  Transmission Date: 20111222
  Serious: Yes (Hospitalization)
  Sender: FDA-Public Use
  Company Number: FR-UCBSA-039696

PATIENT
  Age: 88 Year
  Sex: Female

DRUGS (7)
  1. ATORVASTATIN CALCIUM [Suspect]
     Dosage: 40MG
     Route: 048
     Dates: end: 20110101
  2. NITRODERM [Concomitant]
     Dosage: 10MG/24H
  3. POTASSIUM CHLORIDE [Concomitant]
  4. LASIX [Concomitant]
     Dosage: 20MG
  5. ASPIRIN [Concomitant]
     Dosage: 75MG
  6. KEPPRA [Suspect]
     Route: 048
     Dates: start: 20090101, end: 20110401
  7. BISOPROLOL FUMARATE [Concomitant]

REACTIONS (4)
  - CONFUSIONAL STATE [None]
  - LIVER INJURY [None]
  - THROMBOCYTOPENIA [None]
  - FALL [None]
